FAERS Safety Report 11904571 (Version 1)
Quarter: 2016Q1

REPORT INFORMATION
  Report Type: Spontaneous
  Country: US (occurrence: US)
  Receive Date: 20160108
  Receipt Date: 20160108
  Transmission Date: 20160526
  Serious: Yes (Other)
  Sender: FDA-Public Use
  Company Number: US-ROCHE-1646954

PATIENT
  Age: 69 Year
  Sex: Male

DRUGS (4)
  1. BENDAMUSTINE [Concomitant]
     Active Substance: BENDAMUSTINE
     Indication: CHRONIC LYMPHOCYTIC LEUKAEMIA
     Route: 042
     Dates: start: 20151015, end: 20151016
  2. ONDANSETRON [Concomitant]
     Active Substance: ONDANSETRON
     Route: 042
  3. RITUXAN [Suspect]
     Active Substance: RITUXIMAB
     Indication: CHRONIC LYMPHOCYTIC LEUKAEMIA
     Dosage: PRESCRIBED 800MG, BUT RECIEVED 580MG D/T REACTION
     Route: 042
     Dates: start: 20151014
  4. DEXAMETHASONE. [Concomitant]
     Active Substance: DEXAMETHASONE
     Route: 042

REACTIONS (5)
  - Dyspnoea [Unknown]
  - Rash pruritic [Recovered/Resolved]
  - Dizziness [Unknown]
  - Rash [Unknown]
  - Blood pressure decreased [Unknown]

NARRATIVE: CASE EVENT DATE: 20151014
